FAERS Safety Report 5279513-9 (Version None)
Quarter: 2007Q1

REPORT INFORMATION
  Report Type: 
  Country: None (occurrence: None)
  Receive Date: 20070328
  Receipt Date: 20070317
  Transmission Date: 20070707
  Serious: Yes (Hospitalization, Other)
  Sender: FDA-Public Use
  Company Number: US-PFIZER INC-2006155406

PATIENT
  Sex: Female
  Weight: 68 kg

DRUGS (7)
  1. XALATAN [Suspect]
     Indication: GLAUCOMA
  2. CRESTOR [Concomitant]
     Dosage: DAILY DOSE:10MG
  3. IMDUR [Concomitant]
     Dosage: DAILY DOSE:120MG
  4. ACTOS [Concomitant]
     Dosage: DAILY DOSE:80MG
  5. DIOVAN HCT [Concomitant]
     Dosage: DAILY DOSE:160MG
  6. SYNTHROID [Concomitant]
  7. NEXIUM [Concomitant]

REACTIONS (1)
  - CATHETERISATION CARDIAC [None]
